FAERS Safety Report 8201543-5 (Version None)
Quarter: 2012Q1

REPORT INFORMATION
  Report Type: 
  Country: None (occurrence: None)
  Receive Date: 20120312
  Receipt Date: 20120301
  Transmission Date: 20120608
  Serious: Yes (Hospitalization)
  Sender: FDA-Public Use
  Company Number: FR-GLAXOSMITHKLINE-B0785444A

PATIENT
  Sex: Female

DRUGS (7)
  1. ARIXTRA [Suspect]
     Indication: THROMBOSIS PROPHYLAXIS
     Route: 058
     Dates: start: 20100915, end: 20110102
  2. FERROUS FUMARATE [Concomitant]
  3. CRESTOR [Concomitant]
  4. ACETAMINOPHEN [Concomitant]
  5. POLYETHYLENE GLYCOL [Concomitant]
  6. BISOPROLOL FUMARATE [Concomitant]
  7. LEVOTHYROXINE SODIUM [Concomitant]

REACTIONS (3)
  - INCORRECT DRUG ADMINISTRATION DURATION [None]
  - HAEMATOMA [None]
  - HAEMORRHAGE [None]
